FAERS Safety Report 5669839-9 (Version None)
Quarter: 2008Q1

REPORT INFORMATION
  Report Type: 
  Country: None (occurrence: None)
  Receive Date: 20080314
  Receipt Date: 20080314
  Transmission Date: 20080703
  Serious: Yes (Life-Threatening, Hospitalization, Disabling)
  Sender: FDA-Public Use
  Company Number: None

PATIENT
  Age: 39 Year
  Sex: Female
  Weight: 63.9572 kg

DRUGS (2)
  1. LEVOFLOXACIN [Suspect]
     Indication: CROHN'S DISEASE
     Dosage: 500 MG ONCE DAY - 2 DAYS IV
     Route: 042
     Dates: start: 20061201, end: 20061202
  2. LEVOFLOXACIN [Suspect]
     Indication: INFECTION
     Dosage: 500 MG ONCE DAY - 2 DAYS IV
     Route: 042
     Dates: start: 20061201, end: 20061202

REACTIONS (5)
  - HEART RATE INCREASED [None]
  - INJECTION SITE REACTION [None]
  - OEDEMA PERIPHERAL [None]
  - PAIN [None]
  - REFUSAL OF TREATMENT BY RELATIVE [None]
